FAERS Safety Report 9247657 (Version 2)
Quarter: 2013Q2

REPORT INFORMATION
  Report Type: Spontaneous
  Country: CN (occurrence: CN)
  Receive Date: 20130423
  Receipt Date: 20130426
  Transmission Date: 20140414
  Serious: Yes (Other)
  Sender: FDA-Public Use
  Company Number: CN-PFIZER INC-2013122873

PATIENT
  Age: 30 Year
  Sex: Female

DRUGS (1)
  1. VFEND [Suspect]

REACTIONS (3)
  - Persecutory delusion [Unknown]
  - Hallucination, visual [Unknown]
  - Vision blurred [Unknown]
